FAERS Safety Report 24036387 (Version 1)
Quarter: 2024Q3

REPORT INFORMATION
  Report Type: Spontaneous
  Country: FR (occurrence: FR)
  Receive Date: 20240701
  Receipt Date: 20240701
  Transmission Date: 20241016
  Serious: Yes (Other)
  Sender: BAXTER
  Company Number: None

PATIENT
  Age: 62 Year
  Sex: Female

DRUGS (3)
  1. CYCLOPHOSPHAMIDE [Suspect]
     Active Substance: CYCLOPHOSPHAMIDE
     Indication: HER2 positive breast cancer
     Dosage: UNK, THERAPY START DATE :NOV-2023, THERAPY STOP DATE: FEB-2024
     Route: 042
  2. DOCETAXEL [Suspect]
     Active Substance: DOCETAXEL\DOCETAXEL ANHYDROUS
     Indication: HER2 positive breast cancer
     Dosage: UNK, THERAPY START DATE NOV-2023, THERAPY STOP DATE FEB-2024
     Route: 042
  3. ADO-TRASTUZUMAB EMTANSINE [Suspect]
     Active Substance: ADO-TRASTUZUMAB EMTANSINE
     Indication: HER2 positive breast cancer
     Dosage: UNK, THERAPY START DATE NOV-2023, THERAPY STOP DATE FEB-2024 (MAMMAL/HAMSTER/CHO CELLS)
     Route: 042

REACTIONS (2)
  - Condition aggravated [Recovering/Resolving]
  - Heart failure with midrange ejection fraction [Recovering/Resolving]
